FAERS Safety Report 18812565 (Version 1)
Quarter: 2021Q1

REPORT INFORMATION
  Report Type: Spontaneous
  Country: DE (occurrence: DE)
  Receive Date: 20210130
  Receipt Date: 20210130
  Transmission Date: 20210419
  Serious: Yes (Death)
  Sender: FDA-Public Use
  Company Number: NVSC2021DE022045

PATIENT
  Age: 75 Year
  Sex: Male

DRUGS (1)
  1. DEXAMETHASONE. [Suspect]
     Active Substance: DEXAMETHASONE
     Indication: COVID-19 PNEUMONIA
     Dosage: 6 MG, QD DAILY DOSE: 6 MG MILLGRAM(S) EVERY DAYS
     Route: 065
     Dates: start: 20210102

REACTIONS (2)
  - Emphysema [Fatal]
  - Pneumothorax [Fatal]
